FAERS Safety Report 9733078 (Version 2)
Quarter: 2014Q1

REPORT INFORMATION
  Report Type: Spontaneous
  Country: IL (occurrence: IL)
  Receive Date: 20131205
  Receipt Date: 20140107
  Transmission Date: 20141002
  Serious: Yes (Hospitalization)
  Sender: FDA-Public Use
  Company Number: IL-PFIZER INC-2013345402

PATIENT
  Sex: Male

DRUGS (1)
  1. NORDITROPIN [Suspect]

REACTIONS (1)
  - Cardiovascular disorder [Unknown]
